FAERS Safety Report 6167081-9 (Version None)
Quarter: 2009Q2

REPORT INFORMATION
  Report Type: 
  Country: None (occurrence: None)
  Receive Date: 20090424
  Receipt Date: 20090413
  Transmission Date: 20091009
  Serious: Yes (Other)
  Sender: FDA-Public Use
  Company Number: US-PFIZER INC-2009200523

PATIENT
  Sex: Male
  Weight: 99.773 kg

DRUGS (5)
  1. VIAGRA [Suspect]
     Indication: ERECTILE DYSFUNCTION
     Dates: end: 20090411
  2. LIPITOR [Suspect]
     Indication: BLOOD CHOLESTEROL INCREASED
     Dosage: UNK
  3. VALIUM [Concomitant]
     Dosage: UNK
  4. FOLIC ACID [Concomitant]
     Dosage: UNK
  5. DILANTIN [Concomitant]
     Dosage: UNK

REACTIONS (10)
  - BLOOD CHOLESTEROL INCREASED [None]
  - DRUG INEFFECTIVE [None]
  - FLUSHING [None]
  - MYOCARDIAL INFARCTION [None]
  - NASAL CONGESTION [None]
  - OCULAR HYPERAEMIA [None]
  - PALLOR [None]
  - SKIN DISCOLOURATION [None]
  - TREMOR [None]
  - WEIGHT DECREASED [None]
